FAERS Safety Report 6023994-X (Version None)
Quarter: 2008Q4

REPORT INFORMATION
  Report Type: 
  Country: None (occurrence: None)
  Receive Date: 20081222
  Receipt Date: 20081120
  Transmission Date: 20090506
  Serious: No
  Sender: FDA-Public Use
  Company Number: ALL1-2008-03389

PATIENT
  Age: 8 Year
  Sex: Male
  Weight: 24 kg

DRUGS (3)
  1. VYVANSE [Suspect]
     Indication: ATTENTION DEFICIT/HYPERACTIVITY DISORDER
     Dosage: 20 MG, 1X/DAY:QD, ORAL ; 30 MG, 1X/DAY:QD, ORAL
     Route: 048
     Dates: start: 20080925, end: 20081001
  2. VYVANSE [Suspect]
     Indication: ATTENTION DEFICIT/HYPERACTIVITY DISORDER
     Dosage: 20 MG, 1X/DAY:QD, ORAL ; 30 MG, 1X/DAY:QD, ORAL
     Route: 048
     Dates: start: 20081001
  3. MULTIVITAMIN /00831701/ (VITAMINS NOS) [Concomitant]

REACTIONS (2)
  - ANGER [None]
  - DRUG EFFECT DECREASED [None]
